FAERS Safety Report 5212569-8 (Version None)
Quarter: 2007Q1

REPORT INFORMATION
  Report Type: 
  Country: None (occurrence: None)
  Receive Date: 20070118
  Receipt Date: 20070109
  Transmission Date: 20070707
  Serious: Yes (Other)
  Sender: FDA-Public Use
  Company Number: US-PFIZER INC-2006154841

PATIENT
  Age: 28 Year
  Sex: Female

DRUGS (2)
  1. HYDROXYZINE HYDROCHLORIDE (TABLET) [Suspect]
     Dosage: TEXT:100 TABLETS-FREQ:ONCE
     Route: 048
  2. DILTIAZEM HCL [Suspect]
     Dosage: TEXT:100 TABLETS-FREQ:ONCE
     Route: 048

REACTIONS (2)
  - INTENTIONAL OVERDOSE [None]
  - PLEURAL EFFUSION [None]
